FAERS Safety Report 22001336 (Version 1)
Quarter: 2023Q1

REPORT INFORMATION
  Report Type: Report from Study
  Country: GB (occurrence: GB)
  Receive Date: 20230216
  Receipt Date: 20230216
  Transmission Date: 20230418
  Serious: Yes (Hospitalization, Other)
  Sender: FDA-Public Use
  Company Number: GB-SA-2018SA139547

PATIENT
  Age: 21 Year
  Sex: Male

DRUGS (2)
  1. TERIFLUNOMIDE [Suspect]
     Active Substance: TERIFLUNOMIDE
     Indication: Product used for unknown indication
     Dosage: 14 MILLIGRAM, QD, DOSAGE 1,COATED TABLET
     Route: 065
  2. TERIFLUNOMIDE [Suspect]
     Active Substance: TERIFLUNOMIDE
     Dosage: 14 MILLIGRAM, QD, DOSAGE 1,COATED TABLET
     Route: 048
     Dates: start: 20170920

REACTIONS (3)
  - Surgery [Unknown]
  - Hospitalisation [Unknown]
  - Wound [Unknown]

NARRATIVE: CASE EVENT DATE: 20180701
